FAERS Safety Report 12328414 (Version 1)
Quarter: 2016Q2

REPORT INFORMATION
  Report Type: Spontaneous
  Country: US (occurrence: US)
  Receive Date: 20160503
  Receipt Date: 20160503
  Transmission Date: 20160815
  Serious: No
  Sender: FDA-Public Use
  Company Number: US-BEH-2014043749

PATIENT
  Sex: Female
  Weight: 58 kg

DRUGS (28)
  1. ACETAMINOPHEN. [Concomitant]
     Active Substance: ACETAMINOPHEN
  2. PEPTO-BISMOL [Concomitant]
     Active Substance: BISMUTH SUBSALICYLATE
  3. MUCINEX ER [Concomitant]
  4. POTASSIUM GLUC [Concomitant]
  5. DOXYCYCLINE. [Concomitant]
     Active Substance: DOXYCYCLINE
  6. CLONAZEPAM. [Concomitant]
     Active Substance: CLONAZEPAM
  7. CYANOCOBALAMIN. [Concomitant]
     Active Substance: CYANOCOBALAMIN
  8. DEXTROSE IN FORMAL SALINE [Concomitant]
  9. ZANTAC [Concomitant]
     Active Substance: RANITIDINE HYDROCHLORIDE
  10. HIZENTRA [Suspect]
     Active Substance: HUMAN IMMUNOGLOBULIN G
     Dosage: MULTIPLE SITES OVER 1-2 HOURS
     Route: 058
  11. GAMMAGARD [Concomitant]
     Active Substance: HUMAN IMMUNOGLOBULIN G
  12. TRAZODONE [Concomitant]
     Active Substance: TRAZODONE HYDROCHLORIDE
  13. LEXAPRO [Concomitant]
     Active Substance: ESCITALOPRAM OXALATE
  14. SUDAFED [Concomitant]
     Active Substance: PSEUDOEPHEDRINE HYDROCHLORIDE
  15. CELEBREX [Concomitant]
     Active Substance: CELECOXIB
  16. REQUIP [Concomitant]
     Active Substance: ROPINIROLE HYDROCHLORIDE
  17. SODIUM CHLORIDE. [Concomitant]
     Active Substance: SODIUM CHLORIDE
  18. MAGNESIUM [Concomitant]
     Active Substance: MAGNESIUM
  19. HIZENTRA [Suspect]
     Active Substance: HUMAN IMMUNOGLOBULIN G
     Indication: IMMUNODEFICIENCY COMMON VARIABLE
     Dosage: MULTIPLE SITES OVER 1-2 HOURS
     Route: 058
  20. HIZENTRA [Suspect]
     Active Substance: HUMAN IMMUNOGLOBULIN G
     Route: 058
  21. ALBUTEROL SOLUTION [Concomitant]
  22. DIPHENHYDRAMINE. [Concomitant]
     Active Substance: DIPHENHYDRAMINE
  23. HEPARIN [Concomitant]
     Active Substance: HEPARIN SODIUM
  24. SPIRIVA [Concomitant]
     Active Substance: TIOTROPIUM BROMIDE MONOHYDRATE
  25. HIZENTRA [Suspect]
     Active Substance: HUMAN IMMUNOGLOBULIN G
     Route: 058
  26. LIDOCAINE. [Concomitant]
     Active Substance: LIDOCAINE
  27. EPIPEN [Concomitant]
     Active Substance: EPINEPHRINE
  28. METHYLPREDNISOLONE. [Concomitant]
     Active Substance: METHYLPREDNISOLONE

REACTIONS (2)
  - Paraesthesia oral [Unknown]
  - Pruritus [Unknown]
